FAERS Safety Report 12945323 (Version 1)
Quarter: 2016Q4

REPORT INFORMATION
  Report Type: Spontaneous
  Country: US (occurrence: US)
  Receive Date: 20161116
  Receipt Date: 20161116
  Transmission Date: 20170207
  Serious: No
  Sender: FDA-Public Use
  Company Number: US-JNJFOC-20161002329

PATIENT
  Age: 69 Year
  Sex: Female
  Weight: 68.95 kg

DRUGS (7)
  1. WOMENS ROGAINE UNSCENTED [Suspect]
     Active Substance: MINOXIDIL
     Indication: ANDROGENETIC ALOPECIA
     Dosage: 1/2 CAP, SINCE JUNE
     Route: 061
  2. TOPROL XL [Concomitant]
     Active Substance: METOPROLOL SUCCINATE
     Indication: PALPITATIONS
     Dosage: DAILY
     Route: 065
  3. PLAQUENIL [Concomitant]
     Active Substance: HYDROXYCHLOROQUINE SULFATE
     Indication: RHEUMATOID ARTHRITIS
     Route: 065
  4. VITAMINS NOS [Concomitant]
     Active Substance: VITAMINS
     Indication: NUTRITIONAL SUPPLEMENTATION
     Dosage: DAILY
     Route: 065
  5. THYROXINE [Concomitant]
     Active Substance: LEVOTHYROXINE
     Indication: THYROID DISORDER
     Dosage: DAILY
     Route: 065
  6. WOMENS ROGAINE UNSCENTED [Suspect]
     Active Substance: MINOXIDIL
     Route: 061
  7. ELMIRON [Concomitant]
     Active Substance: PENTOSAN POLYSULFATE SODIUM
     Indication: INFECTION PROPHYLAXIS
     Dosage: DAILY
     Route: 048

REACTIONS (3)
  - Palpitations [Recovered/Resolved]
  - Hair growth abnormal [Not Recovered/Not Resolved]
  - Drug effect incomplete [Unknown]
